FAERS Safety Report 5618955-6 (Version None)
Quarter: 2008Q1

REPORT INFORMATION
  Report Type: 
  Country: None (occurrence: None)
  Receive Date: 20080207
  Receipt Date: 20080131
  Transmission Date: 20080703
  Serious: Yes (Life-Threatening, Hospitalization)
  Sender: FDA-Public Use
  Company Number: JP-PFIZER INC-2007108794

PATIENT
  Sex: Male
  Weight: 60 kg

DRUGS (3)
  1. SALAZOPYRIN [Suspect]
     Indication: COLITIS ULCERATIVE
     Route: 048
     Dates: start: 20071105, end: 20071221
  2. MESALAMINE [Suspect]
     Indication: COLITIS ULCERATIVE
     Dosage: DAILY DOSE:1GRAM-FREQ:DAILY
     Route: 054
     Dates: start: 20071203, end: 20071218
  3. BETAMETHASONE [Concomitant]
     Route: 054
     Dates: start: 20071105, end: 20071218

REACTIONS (3)
  - DRUG ERUPTION [None]
  - LYMPHOCYTE TRANSFORMATION TEST POSITIVE [None]
  - PYREXIA [None]
